FAERS Safety Report 6371560-9 (Version None)
Quarter: 2009Q3

REPORT INFORMATION
  Report Type: 
  Country: None (occurrence: None)
  Receive Date: 20090923
  Receipt Date: 20090623
  Transmission Date: 20100115
  Serious: Yes (Hospitalization)
  Sender: FDA-Public Use
  Company Number: US-ASTRAZENECA-2007UW18086

PATIENT
  Age: 676 Month
  Sex: Female
  Weight: 60.8 kg

DRUGS (20)
  1. SEROQUEL [Suspect]
     Indication: BIPOLAR DISORDER
     Route: 048
     Dates: start: 20020101
  2. SEROQUEL [Suspect]
     Indication: DEPRESSION
     Route: 048
     Dates: start: 20020101
  3. SEROQUEL [Suspect]
     Dosage: 20MG TO 200MG
     Route: 048
     Dates: start: 20040124
  4. SEROQUEL [Suspect]
     Dosage: 20MG TO 200MG
     Route: 048
     Dates: start: 20040124
  5. CLOZARIL [Concomitant]
     Dosage: 10 MG ONCE DAILY; INCREASED TO 20 MG ONCE DAILY
     Dates: start: 20010101, end: 20050101
  6. NAVANE [Concomitant]
  7. LEXAPRO [Concomitant]
     Route: 048
     Dates: start: 20040126
  8. XANAX [Concomitant]
     Dosage: 0.5MG TO 1MG
     Route: 048
  9. TRAMADOL HCL [Concomitant]
     Route: 048
  10. LIPITOR [Concomitant]
     Dosage: 10MG TO 80 MG
     Route: 048
  11. LORTAB [Concomitant]
     Dosage: 7.5 MG
     Route: 048
  12. ZANTAC [Concomitant]
     Route: 048
  13. GEMFIBROZIL [Concomitant]
     Route: 048
     Dates: start: 20031003
  14. ZYRTEC [Concomitant]
     Route: 048
  15. ZYPREXA [Concomitant]
     Route: 048
  16. ALBUTEROL [Concomitant]
     Route: 045
  17. TRIGLIDE [Concomitant]
     Route: 048
  18. CLONAZEPAM [Concomitant]
     Route: 048
  19. ASPIRIN [Concomitant]
     Route: 048
  20. PROMETHAZINE [Concomitant]
     Route: 048

REACTIONS (2)
  - GLYCOSURIA [None]
  - PANCREATITIS RELAPSING [None]
